FAERS Safety Report 8392180-0 (Version None)
Quarter: 2012Q2

REPORT INFORMATION
  Report Type: 
  Country: None (occurrence: None)
  Receive Date: 20120529
  Receipt Date: 20120521
  Transmission Date: 20120825
  Serious: Yes (Other)
  Sender: FDA-Public Use
  Company Number: US-ROCHE-1047383

PATIENT
  Sex: Male
  Weight: 150 kg

DRUGS (5)
  1. ACCUTANE [Suspect]
     Indication: ACNE
     Dates: start: 19830101, end: 19850101
  2. CIPROFLOXACIN [Concomitant]
  3. ASACOL [Concomitant]
  4. METRONIDAZOLE [Concomitant]
  5. BUDESONIDE [Concomitant]

REACTIONS (3)
  - POUCHITIS [None]
  - COLITIS ULCERATIVE [None]
  - INFLAMMATORY BOWEL DISEASE [None]
